FAERS Safety Report 4562914-1 (Version None)
Quarter: 2005Q1

REPORT INFORMATION
  Report Type: 
  Country: None (occurrence: None)
  Receive Date: 20050121
  Receipt Date: 20050103
  Transmission Date: 20050727
  Serious: Yes (Death)
  Sender: FDA-Public Use
  Company Number: EWC031137009

PATIENT
  Age: 50 Year
  Sex: Male

DRUGS (6)
  1. ZYPREXA [Suspect]
     Indication: BIPOLAR DISORDER
     Dosage: 10MG//IN THE EVENING
     Dates: start: 20031107, end: 20031116
  2. HALDOL [Concomitant]
  3. CISORDINOL (CLOPEHTIXOL HYDROCHLORIDE) [Concomitant]
  4. LITHIUM [Concomitant]
  5. STESOLID (DIAZEPAM) [Concomitant]
  6. HEMINEVRIN (CLOMETHIAZOLE EDISILATE) [Concomitant]

REACTIONS (14)
  - ALANINE AMINOTRANSFERASE INCREASED [None]
  - ANGIOPATHY [None]
  - ASPARTATE AMINOTRANSFERASE INCREASED [None]
  - BLOOD GLUCOSE INCREASED [None]
  - CARDIAC DISORDER [None]
  - DRUG TOXICITY [None]
  - GAMMA-GLUTAMYLTRANSFERASE INCREASED [None]
  - NERVOUSNESS [None]
  - PULMONARY OEDEMA [None]
  - REFUSAL OF TREATMENT BY PATIENT [None]
  - SNORING [None]
  - SOMNOLENCE [None]
  - SWELLING [None]
  - TREATMENT NONCOMPLIANCE [None]
